FAERS Safety Report 18354261 (Version 1)
Quarter: 2020Q4

REPORT INFORMATION
  Report Type: Spontaneous
  Country: US (occurrence: US)
  Receive Date: 20201007
  Receipt Date: 20201007
  Transmission Date: 20210114
  Serious: No
  Sender: FDA-Public Use
  Company Number: US-DSJP-DSU-2020-128968

PATIENT
  Sex: Female
  Weight: 49.89 kg

DRUGS (2)
  1. EVOXAC [Suspect]
     Active Substance: CEVIMELINE HYDROCHLORIDE
     Indication: SJOGREN^S SYNDROME
     Dosage: 30 MG, TID
     Route: 048
     Dates: start: 2009
  2. EVOXAC AG [Suspect]
     Active Substance: CEVIMELINE HYDROCHLORIDE
     Indication: SJOGREN^S SYNDROME
     Dosage: 30 MG, TID
     Route: 048

REACTIONS (4)
  - Insomnia [Unknown]
  - Dry mouth [Unknown]
  - Oral discomfort [Unknown]
  - Tooth erosion [Unknown]
